FAERS Safety Report 6807138-X (Version None)
Quarter: 2010Q2

REPORT INFORMATION
  Report Type: 
  Country: None (occurrence: None)
  Receive Date: 20100629
  Receipt Date: 20081029
  Transmission Date: 20101027
  Serious: No
  Sender: FDA-Public Use
  Company Number: US-PFIZER INC-2008059716

PATIENT
  Sex: Male
  Weight: 70.5 kg

DRUGS (16)
  1. VIAGRA [Suspect]
     Indication: ERECTILE DYSFUNCTION
     Route: 048
     Dates: start: 20080602
  2. ATROVENT [Concomitant]
  3. FLOVENT [Concomitant]
  4. FOSAMAX PLUS D [Concomitant]
  5. PROTONIX [Concomitant]
  6. CHLORDIAZEPOXIDE [Concomitant]
  7. FIORICET W/ CODEINE [Concomitant]
  8. LORCET-HD [Concomitant]
  9. METFORMIN HYDROCHLORIDE [Concomitant]
  10. VENLAFAXINE HYDROCHLORIDE [Concomitant]
  11. DILTIAZEM HYDROCHLORIDE [Concomitant]
  12. BISELECT [Concomitant]
  13. ACTOS [Concomitant]
  14. FOSINOPRIL SODIUM [Concomitant]
  15. CRESTOR [Concomitant]
  16. ALL OTHER THERAPEUTIC PRODUCTS [Concomitant]

REACTIONS (3)
  - BLOOD TESTOSTERONE DECREASED [None]
  - DRUG INEFFECTIVE [None]
  - ERECTILE DYSFUNCTION [None]
